FAERS Safety Report 5704594-5 (Version None)
Quarter: 2008Q2

REPORT INFORMATION
  Report Type: 
  Country: None (occurrence: None)
  Receive Date: 20080409
  Receipt Date: 20080327
  Transmission Date: 20081010
  Serious: Yes (Hospitalization)
  Sender: FDA-Public Use
  Company Number: CLOF-10510

PATIENT
  Age: 9 Year
  Sex: Female
  Weight: 24.3 kg

DRUGS (34)
  1. CLOFARABINE (CLOFARABINE) [Suspect]
     Indication: ACUTE LYMPHOCYTIC LEUKAEMIA
     Dosage: 30 MG/M2, IV; 20 G/M2, IV; 20 MG/M2, QD, IV-SEE IMAGE
     Route: 042
     Dates: start: 20061129, end: 20061202
  2. CLOFARABINE (CLOFARABINE) [Suspect]
     Indication: ACUTE LYMPHOCYTIC LEUKAEMIA
     Dosage: 30 MG/M2, IV; 20 G/M2, IV; 20 MG/M2, QD, IV-SEE IMAGE
     Route: 042
     Dates: start: 20061226, end: 20061229
  3. CLOFARABINE (CLOFARABINE) [Suspect]
     Indication: ACUTE LYMPHOCYTIC LEUKAEMIA
     Dosage: 30 MG/M2, IV; 20 G/M2, IV; 20 MG/M2, QD, IV-SEE IMAGE
     Route: 042
     Dates: start: 20070123, end: 20070126
  4. CLOFARABINE (CLOFARABINE) [Suspect]
     Indication: ACUTE LYMPHOCYTIC LEUKAEMIA
     Dosage: 30 MG/M2, IV; 20 G/M2, IV; 20 MG/M2, QD, IV-SEE IMAGE
     Route: 042
     Dates: start: 20070226, end: 20070301
  5. CLOFARABINE (CLOFARABINE) [Suspect]
     Indication: ACUTE LYMPHOCYTIC LEUKAEMIA
     Dosage: 30 MG/M2, IV; 20 G/M2, IV; 20 MG/M2, QD, IV-SEE IMAGE
     Route: 042
     Dates: start: 20070412, end: 20070415
  6. ETOPOSIDE [Suspect]
     Indication: ACUTE LYMPHOCYTIC LEUKAEMIA
     Dosage: 106 MG, QD, IV;106 MG, 100 MG, IV-SEE IMAGE
     Route: 042
     Dates: start: 20061129, end: 20061202
  7. ETOPOSIDE [Suspect]
     Indication: ACUTE LYMPHOCYTIC LEUKAEMIA
     Dosage: 106 MG, QD, IV;106 MG, 100 MG, IV-SEE IMAGE
     Route: 042
     Dates: start: 20061206, end: 20061206
  8. ETOPOSIDE [Suspect]
     Indication: ACUTE LYMPHOCYTIC LEUKAEMIA
     Dosage: 106 MG, QD, IV;106 MG, 100 MG, IV-SEE IMAGE
     Route: 042
     Dates: start: 20061226, end: 20061229
  9. ETOPOSIDE [Suspect]
     Indication: ACUTE LYMPHOCYTIC LEUKAEMIA
     Dosage: 106 MG, QD, IV;106 MG, 100 MG, IV-SEE IMAGE
     Route: 042
     Dates: start: 20070123, end: 20070126
  10. ETOPOSIDE [Suspect]
     Indication: ACUTE LYMPHOCYTIC LEUKAEMIA
     Dosage: 106 MG, QD, IV;106 MG, 100 MG, IV-SEE IMAGE
     Route: 042
     Dates: start: 20070226, end: 20070301
  11. ETOPOSIDE [Suspect]
     Indication: ACUTE LYMPHOCYTIC LEUKAEMIA
     Dosage: 106 MG, QD, IV;106 MG, 100 MG, IV-SEE IMAGE
     Route: 042
     Dates: start: 20070412, end: 20070415
  12. CYCLOPHOSPHAMIDE [Suspect]
     Indication: ACUTE LYMPHOCYTIC LEUKAEMIA
     Dosage: 470MG, QD, IV; 400 MG, IV - SEE IMAGE
     Route: 042
     Dates: start: 20061129, end: 20061202
  13. CYCLOPHOSPHAMIDE [Suspect]
     Indication: ACUTE LYMPHOCYTIC LEUKAEMIA
     Dosage: 470MG, QD, IV; 400 MG, IV - SEE IMAGE
     Route: 042
     Dates: start: 20061206, end: 20061206
  14. CYCLOPHOSPHAMIDE [Suspect]
     Indication: ACUTE LYMPHOCYTIC LEUKAEMIA
     Dosage: 470MG, QD, IV; 400 MG, IV - SEE IMAGE
     Route: 042
     Dates: start: 20061226, end: 20061229
  15. CYCLOPHOSPHAMIDE [Suspect]
     Indication: ACUTE LYMPHOCYTIC LEUKAEMIA
     Dosage: 470MG, QD, IV; 400 MG, IV - SEE IMAGE
     Route: 042
     Dates: start: 20070123, end: 20070126
  16. CYCLOPHOSPHAMIDE [Suspect]
     Indication: ACUTE LYMPHOCYTIC LEUKAEMIA
     Dosage: 470MG, QD, IV; 400 MG, IV - SEE IMAGE
     Route: 042
     Dates: start: 20070226, end: 20070301
  17. CYCLOPHOSPHAMIDE [Suspect]
     Indication: ACUTE LYMPHOCYTIC LEUKAEMIA
     Dosage: 470MG, QD, IV; 400 MG, IV - SEE IMAGE
     Route: 042
     Dates: start: 20070412, end: 20070415
  18. CHLORHEXIDINE (CHLORHEXIDINE) [Concomitant]
  19. NYSTATIN [Concomitant]
  20. SULFATRIMETHAZOLE - TRIMETHOPRIME [Concomitant]
  21. AMIKACIN [Concomitant]
  22. DIPHENHYDRATE [Concomitant]
  23. NEUPOGEN [Concomitant]
  24. FLUCONAZOLE [Concomitant]
  25. LEVOFLOXACIN [Concomitant]
  26. HEPARIN [Concomitant]
  27. MEROPENEM (MEROPENEM) [Concomitant]
  28. MORPHINE [Concomitant]
  29. POTASSIUM CLORIDE [Concomitant]
  30. PHENAZOPYRIDINE (PHENAZOPYRIDINE) [Concomitant]
  31. SODIUM CLORIDE SPRAY [Concomitant]
  32. VANCOMYCIN [Concomitant]
  33. VORICONAZOLE (VORICONAZOLE) [Concomitant]
  34. ACETAMINOPHEN [Concomitant]

REACTIONS (9)
  - ATELECTASIS [None]
  - BK VIRUS INFECTION [None]
  - CANDIDIASIS [None]
  - CULTURE STOOL POSITIVE [None]
  - CYSTITIS HAEMORRHAGIC [None]
  - FEBRILE NEUTROPENIA [None]
  - MUCOSAL INFLAMMATION [None]
  - PANCREATITIS [None]
  - SINUSITIS [None]
